FAERS Safety Report 6089125-5 (Version None)
Quarter: 2009Q1

REPORT INFORMATION
  Report Type: 
  Country: None (occurrence: None)
  Receive Date: 20090224
  Receipt Date: 20090213
  Transmission Date: 20090719
  Serious: Yes (Death, Hospitalization, Other)
  Sender: FDA-Public Use
  Company Number: US-AMGEN-US334269

PATIENT
  Age: 36 Year
  Sex: Female

DRUGS (1)
  1. EPOGEN [Suspect]
     Indication: DIALYSIS
     Route: 010

REACTIONS (9)
  - ACCELERATED HYPERTENSION [None]
  - AGITATION [None]
  - COMA [None]
  - HYPERGLYCAEMIA [None]
  - NAUSEA [None]
  - PERITONITIS [None]
  - PORPHYRIA [None]
  - SEPSIS [None]
  - VOMITING [None]
